FAERS Safety Report 11746669 (Version 1)
Quarter: 2015Q4

REPORT INFORMATION
  Report Type: Spontaneous
  Country: US (occurrence: US)
  Receive Date: 20151117
  Receipt Date: 20151117
  Transmission Date: 20160304
  Serious: No
  Sender: FDA-Public Use
  Company Number: US-PERRIGO-14US010870

PATIENT
  Age: 79 Year
  Sex: Female
  Weight: 46.71 kg

DRUGS (1)
  1. ERYTHROMYCIN OPHTHALMIC USP 0.5% 5W7 [Suspect]
     Active Substance: ERYTHROMYCIN
     Indication: HORDEOLUM
     Dosage: 1 THIN LAYER, QD
     Route: 047
     Dates: start: 20141028

REACTIONS (3)
  - Urticaria [Unknown]
  - Pruritus [Unknown]
  - Drug administration error [Unknown]

NARRATIVE: CASE EVENT DATE: 20141028
